FAERS Safety Report 21897307 (Version 1)
Quarter: 2023Q1

REPORT INFORMATION
  Report Type: Report from Study
  Country: CO (occurrence: CO)
  Receive Date: 20230123
  Receipt Date: 20230123
  Transmission Date: 20230418
  Serious: Yes (Hospitalization)
  Sender: FDA-Public Use
  Company Number: CO-ASTELLAS-2023US001977

PATIENT
  Age: 70 Year
  Sex: Female

DRUGS (1)
  1. TACROLIMUS [Suspect]
     Active Substance: TACROLIMUS
     Indication: Renal transplant
     Dosage: 9 MG, ONCE DAILY (1 X 5MG CAPSULE AND 4 X 1 MG CAPSULES)
     Route: 048
     Dates: start: 20170406

REACTIONS (2)
  - Discomfort [Recovered/Resolved]
  - Cough [Recovered/Resolved]
